FAERS Safety Report 9457785 (Version 4)
Quarter: 2014Q1

REPORT INFORMATION
  Report Type: Spontaneous
  Country: JP (occurrence: JP)
  Receive Date: 20130814
  Receipt Date: 20140123
  Transmission Date: 20141002
  Serious: Yes (Hospitalization)
  Sender: FDA-Public Use
  Company Number: PHHY2013JP087154

PATIENT
  Sex: Female

DRUGS (1)
  1. TEGRETOL [Suspect]
     Indication: EPILEPSY
     Dosage: 1.2 G, 12 TABLETS
     Route: 048

REACTIONS (9)
  - Toxicity to various agents [Recovered/Resolved]
  - Somnolence [Recovered/Resolved]
  - Depressed level of consciousness [Recovered/Resolved]
  - Gait disturbance [Recovered/Resolved]
  - Drug level increased [Recovered/Resolved]
  - Respiratory depression [Recovering/Resolving]
  - Speech disorder [Recovering/Resolving]
  - Sedation [Unknown]
  - Overdose [Unknown]
